FAERS Safety Report 6052072-9 (Version None)
Quarter: 2009Q1

REPORT INFORMATION
  Report Type: 
  Country: None (occurrence: None)
  Receive Date: 20090126
  Receipt Date: 20090115
  Transmission Date: 20090719
  Serious: Yes (Other)
  Sender: FDA-Public Use
  Company Number: US-ROXANE LABORATORIES, INC.-2009-RO-00072RO

PATIENT
  Age: 45 Year
  Sex: Female

DRUGS (16)
  1. PREDNISONE [Suspect]
     Indication: IMMUNOSUPPRESSANT DRUG THERAPY
     Dosage: 8MG
  2. PREDNISONE [Suspect]
     Dosage: 6MG
  3. PREDNISONE [Suspect]
     Dosage: 5MG
  4. CELLCEPT [Suspect]
     Indication: IMMUNOSUPPRESSANT DRUG THERAPY
     Dosage: 500MG
  5. CELLCEPT [Suspect]
     Dosage: 1000MG
  6. RAPAMYCIN [Suspect]
     Indication: IMMUNOSUPPRESSANT DRUG THERAPY
     Dosage: 4MG
  7. RAPAMYCIN [Suspect]
     Dosage: 2MG
  8. PROGRAF [Suspect]
     Indication: IMMUNOSUPPRESSANT DRUG THERAPY
     Dosage: 4MG
  9. PROGRAF [Suspect]
     Dosage: 5MG
  10. PROGRAF [Suspect]
     Dosage: 3MG
  11. PROGRAF [Suspect]
     Dosage: 2.5MG
  12. CARBOPLATIN [Suspect]
     Indication: CHEMOTHERAPY
     Route: 042
  13. FEMARA [Suspect]
     Indication: CHEMOTHERAPY
     Dosage: 2.5MG
     Route: 048
  14. TAXOL [Suspect]
     Indication: CHEMOTHERAPY
     Route: 042
     Dates: start: 20070501
  15. XELODA [Suspect]
     Indication: CHEMOTHERAPY
     Dosage: 1000MG
     Route: 048
  16. NEULASTA [Concomitant]

REACTIONS (2)
  - ADENOSQUAMOUS CARCINOMA OF THE CERVIX [None]
  - NEUTROPENIA [None]
